FAERS Safety Report 8978389 (Version 6)
Quarter: 2013Q3

REPORT INFORMATION
  Report Type: Spontaneous
  Country: US (occurrence: US)
  Receive Date: 20121221
  Receipt Date: 20130825
  Transmission Date: 20140515
  Serious: Yes (Hospitalization, Other)
  Sender: FDA-Public Use
  Company Number: US-009507513-1212USA007994

PATIENT
  Age: 57 Year
  Sex: Female
  Weight: 115.19 kg

DRUGS (3)
  1. PEGINTRON [Suspect]
     Indication: HEPATITIS C
     Dosage: 150 MICROGRAM, QW
     Route: 058
     Dates: start: 20121207
  2. TELAPREVIR [Suspect]
     Indication: HEPATITIS C
     Dosage: UNK
     Dates: start: 20121207, end: 20130301
  3. RIBAPAK [Suspect]
     Indication: HEPATITIS C
     Dosage: UNK
     Dates: start: 20121207

REACTIONS (29)
  - Oedema peripheral [Unknown]
  - Tongue disorder [Unknown]
  - Balance disorder [Unknown]
  - Insomnia [Not Recovered/Not Resolved]
  - Breast disorder female [Recovered/Resolved]
  - Mental disorder [Unknown]
  - Tremor [Unknown]
  - Anaemia [Unknown]
  - Weight increased [Unknown]
  - Wheezing [Unknown]
  - Memory impairment [Unknown]
  - Hypokalaemia [Unknown]
  - Dry skin [Unknown]
  - Fatigue [Not Recovered/Not Resolved]
  - Pruritus [Not Recovered/Not Resolved]
  - Dry skin [Unknown]
  - Pruritus [Recovered/Resolved]
  - Decreased appetite [Unknown]
  - Nausea [Unknown]
  - Haemoglobin decreased [Unknown]
  - Haemoglobin decreased [Unknown]
  - Rash [Unknown]
  - Fatigue [Unknown]
  - Thrombocytopenia [Unknown]
  - Injection site reaction [Unknown]
  - Dyspnoea [Unknown]
  - Fatigue [Not Recovered/Not Resolved]
  - Pruritus [Recovered/Resolved]
  - Suicidal ideation [Unknown]
